FAERS Safety Report 26214202 (Version 1)
Quarter: 2025Q4

REPORT INFORMATION
  Report Type: Spontaneous
  Country: GB (occurrence: GB)
  Receive Date: 20251230
  Receipt Date: 20251230
  Transmission Date: 20260117
  Serious: Yes (Other)
  Sender: SANDOZ
  Company Number: None

PATIENT
  Age: 34 Year
  Sex: Female
  Weight: 81 kg

DRUGS (4)
  1. METFORMIN [Suspect]
     Active Substance: METFORMIN HYDROCHLORIDE
     Indication: Ill-defined disorder
     Dosage: 500 MG
  2. LANSOPRAZOLE [Concomitant]
     Active Substance: LANSOPRAZOLE
     Indication: Ill-defined disorder
     Dosage: TAKE 1 CAPSULE ONCE A DAY- WITH FOOD
     Dates: start: 20251022, end: 20251105
  3. NAPROXEN [Concomitant]
     Active Substance: NAPROXEN
     Indication: Ill-defined disorder
     Dosage: TAKE 1 TABLET TWICE A DAY WITH FOOD
     Dates: start: 20251022, end: 20251105
  4. DAPAGLIFLOZIN [Concomitant]
     Active Substance: DAPAGLIFLOZIN
     Indication: Ill-defined disorder
     Dosage: TAKE ONE TO BE TAKEN TABLET ONCE A DAY
     Dates: start: 20250915

REACTIONS (1)
  - Gastrointestinal disorder [Recovered/Resolved]
